FAERS Safety Report 15894594 (Version 5)
Quarter: 2020Q1

REPORT INFORMATION
  Report Type: Report from Study
  Country: US (occurrence: US)
  Receive Date: 20190131
  Receipt Date: 20200303
  Transmission Date: 20200409
  Serious: Yes (Other)
  Sender: FDA-Public Use
  Company Number: US-ROCHE-2251311

PATIENT
  Age: 63 Year
  Sex: Female
  Weight: 51.98 kg

DRUGS (9)
  1. AMPYRA [Concomitant]
     Active Substance: DALFAMPRIDINE
     Dosage: STOPPED BECAUSE TOO EXPENSIVE
     Route: 048
     Dates: start: 201901, end: 201901
  2. BACLOFEN. [Concomitant]
     Active Substance: BACLOFEN
     Dosage: 20 TO 30 MG AT NIGHT
     Route: 048
  3. OCREVUS [Suspect]
     Active Substance: OCRELIZUMAB
     Dosage: ONGOING: YES
     Route: 042
  4. OCREVUS [Suspect]
     Active Substance: OCRELIZUMAB
     Indication: RELAPSING-REMITTING MULTIPLE SCLEROSIS
     Dosage: ONGOING:NO,INTERVAL 2 WEEKS, 27/JUN/2017 SHE RECEIVED SAME SUBSEQUENT DOSE
     Route: 042
     Dates: start: 20170613
  5. BACLOFEN. [Concomitant]
     Active Substance: BACLOFEN
     Dosage: AT BEDTIME
     Route: 048
  6. MSM [METHYLSULFONYLMETHANE] [Concomitant]
     Indication: ARTHRITIS
  7. OMEGA 3 [DOCOSAHEXAENOIC ACID;EICOSAPENTAENOIC ACID] [Concomitant]
     Active Substance: DOCONEXENT\ICOSAPENT
     Dosage: ONGOING YES
     Route: 065
  8. ACETAMINOPHEN. [Concomitant]
     Active Substance: ACETAMINOPHEN
     Indication: ARTHRITIS
     Route: 065
  9. FISH OIL [Concomitant]
     Active Substance: FISH OIL
     Route: 048

REACTIONS (13)
  - Vaginal infection [Recovering/Resolving]
  - Weight decreased [Recovering/Resolving]
  - Abdominal distension [Recovering/Resolving]
  - Decreased appetite [Recovering/Resolving]
  - Cellulitis [Not Recovered/Not Resolved]
  - Diarrhoea [Recovering/Resolving]
  - Irritable bowel syndrome [Recovering/Resolving]
  - Vulvovaginal mycotic infection [Not Recovered/Not Resolved]
  - Blister [Not Recovered/Not Resolved]
  - Root canal infection [Not Recovered/Not Resolved]
  - Colitis microscopic [Not Recovered/Not Resolved]
  - Urinary tract infection [Recovered/Resolved]
  - Pollakiuria [Recovered/Resolved]

NARRATIVE: CASE EVENT DATE: 201806
